FAERS Safety Report 6150833-9 (Version None)
Quarter: 2009Q2

REPORT INFORMATION
  Report Type: 
  Country: None (occurrence: None)
  Receive Date: 20090408
  Receipt Date: 20090320
  Transmission Date: 20091009
  Serious: Yes (Hospitalization)
  Sender: FDA-Public Use
  Company Number: 2009AL001704

PATIENT
  Age: 54 Year
  Sex: Female

DRUGS (19)
  1. DIGOXIN [Suspect]
     Dosage: 0.125MG, DAILY, PO
     Route: 048
  2. LISINOPRIL [Concomitant]
  3. FUROSEMIDE [Concomitant]
  4. CARVEDILOL [Concomitant]
  5. WARFARIN SODIUM [Concomitant]
  6. ZOCOR [Concomitant]
  7. PROTONIX [Concomitant]
  8. ASPIRIN [Concomitant]
  9. NITROGLYCERIN [Concomitant]
  10. ALBUTEROL [Concomitant]
  11. LIPITOR [Concomitant]
  12. VIOXX [Concomitant]
  13. ENALAPRIL [Concomitant]
  14. PREVACID [Concomitant]
  15. ATORVASTATIN [Concomitant]
  16. NORVASC [Concomitant]
  17. METAMUCIL [Concomitant]
  18. SENOKOT [Concomitant]
  19. PERCOCET [Concomitant]

REACTIONS (5)
  - CEREBRAL INFARCTION [None]
  - CORONARY ARTERY THROMBOSIS [None]
  - HAEMATOMA [None]
  - LEG AMPUTATION [None]
  - MYOCARDIAL INFARCTION [None]
